FAERS Safety Report 7535701-X (Version None)
Quarter: 2011Q2

REPORT INFORMATION
  Report Type: 
  Country: None (occurrence: None)
  Receive Date: 20110524
  Receipt Date: 20110412
  Transmission Date: 20111010
  Serious: No
  Sender: FDA-Public Use
  Company Number: 031079

PATIENT
  Sex: Female
  Weight: 83.9 kg

DRUGS (3)
  1. XANAX [Concomitant]
  2. CIMZIA [Suspect]
     Indication: CROHN'S DISEASE
     Dosage: (400 MG 1X/MONTH, 2 SYRINGES SUBCUTANEOUS)
     Route: 058
     Dates: start: 20110228
  3. PERCOCET [Concomitant]

REACTIONS (8)
  - VOMITING [None]
  - RESPIRATORY TRACT CONGESTION [None]
  - URINARY TRACT INFECTION [None]
  - NAUSEA [None]
  - PAIN IN EXTREMITY [None]
  - BONE PAIN [None]
  - BACK PAIN [None]
  - BUNION [None]
